FAERS Safety Report 7931686-2 (Version None)
Quarter: 2011Q4

REPORT INFORMATION
  Report Type: 
  Country: None (occurrence: None)
  Receive Date: 20111121
  Receipt Date: 20111115
  Transmission Date: 20120403
  Serious: Yes (Death, Hospitalization)
  Sender: FDA-Public Use
  Company Number: PHEH2011US009552

PATIENT
  Sex: Female

DRUGS (1)
  1. GLEEVEC [Suspect]
     Indication: CHRONIC MYELOID LEUKAEMIA
     Dosage: 400 MG, QD
     Route: 048

REACTIONS (7)
  - RENAL FAILURE [None]
  - MUSCLE SPASMS [None]
  - INTESTINAL OBSTRUCTION [None]
  - DEATH [None]
  - ASCITES [None]
  - MOBILITY DECREASED [None]
  - INTESTINAL PERFORATION [None]
